FAERS Safety Report 24418304 (Version 1)
Quarter: 2024Q4

REPORT INFORMATION
  Report Type: Spontaneous
  Country: US (occurrence: US)
  Receive Date: 20241009
  Receipt Date: 20241009
  Transmission Date: 20250114
  Serious: No
  Sender: SANOFI AVENTIS
  Company Number: US-SA-2024SA287863

PATIENT
  Age: 9 Year
  Sex: Male

DRUGS (20)
  1. DUPIXENT [Suspect]
     Active Substance: DUPILUMAB
     Indication: Dermatitis atopic
     Dosage: 200 MG, QOW
     Route: 058
  2. ALBUTEROL SULFATE [Concomitant]
     Active Substance: ALBUTEROL SULFATE
  3. CETIRIZINE [Concomitant]
     Active Substance: CETIRIZINE HYDROCHLORIDE
  4. CLONIDINE [Concomitant]
     Active Substance: CLONIDINE
  5. CYPROHEPTADINE [Concomitant]
     Active Substance: CYPROHEPTADINE
  6. DEXMETHYLPHENIDATE [Concomitant]
     Active Substance: DEXMETHYLPHENIDATE
  7. DEXMETHYLPHENIDATE [Concomitant]
     Active Substance: DEXMETHYLPHENIDATE
  8. DEXMETHYLPHENIDATE [Concomitant]
     Active Substance: DEXMETHYLPHENIDATE
  9. DEXMETHYLPHENIDATE [Concomitant]
     Active Substance: DEXMETHYLPHENIDATE
  10. EPINEPHRINE [Concomitant]
     Active Substance: EPINEPHRINE
  11. FAMOTIDINE [Concomitant]
     Active Substance: FAMOTIDINE
  12. FLOVENT [Concomitant]
     Active Substance: FLUTICASONE PROPIONATE
  13. FLUTICASONE [Concomitant]
     Active Substance: FLUTICASONE
  14. HYDROXYZINE HYDROCHLORIDE [Concomitant]
     Active Substance: HYDROXYZINE HYDROCHLORIDE
  15. IBUPROFEN [Concomitant]
     Active Substance: IBUPROFEN
  16. PREDNISOLONE [Concomitant]
     Active Substance: PREDNISOLONE
  17. TACROLIMUS [Concomitant]
     Active Substance: TACROLIMUS
  18. TRIAMCINOLONE [Concomitant]
     Active Substance: TRIAMCINOLONE
  19. VITAMIN D NOS [Concomitant]
     Active Substance: CHOLECALCIFEROL\ERGOCALCIFEROL
  20. VITAMIN D3 [Concomitant]
     Active Substance: CHOLECALCIFEROL

REACTIONS (3)
  - Dermatitis [Unknown]
  - Sleep disorder due to a general medical condition [Unknown]
  - Impaired quality of life [Unknown]
